FAERS Safety Report 22285824 (Version 1)
Quarter: 2023Q2

REPORT INFORMATION
  Report Type: Report from Study
  Country: US (occurrence: US)
  Receive Date: 20230504
  Receipt Date: 20230504
  Transmission Date: 20230721
  Serious: Yes (Hospitalization, Other)
  Sender: FDA-Public Use
  Company Number: US-ACADIA PHARMACEUTICALS INC.-ACA-2023-PIM-001405

PATIENT
  Age: 76 Year
  Sex: Male

DRUGS (11)
  1. NUPLAZID [Suspect]
     Active Substance: PIMAVANSERIN TARTRATE
     Indication: Parkinson^s disease psychosis
     Dosage: 34 MILLIGRAM, QD
     Route: 048
     Dates: start: 20230125, end: 20230405
  2. BACLOFEN [Concomitant]
     Active Substance: BACLOFEN
     Dosage: 10 MILLIGRAM
  3. ATORVASTATIN CALCIUM [Concomitant]
     Active Substance: ATORVASTATIN CALCIUM
     Dosage: 40 MILLIGRAM
  4. FINASTERIDE [Concomitant]
     Active Substance: FINASTERIDE
     Dosage: 0.4 MILLIGRAM
  5. PANTOPRAZOLE [Concomitant]
     Active Substance: PANTOPRAZOLE
     Dosage: 40 MILLIGRAM
  6. METOPROLOL [Concomitant]
     Active Substance: METOPROLOL
     Dosage: 25 MILLIGRAM
  7. LANTUS [Concomitant]
     Active Substance: INSULIN GLARGINE
     Dosage: 100 UNITS
  8. GABAPENTIN [Concomitant]
     Active Substance: GABAPENTIN
     Dosage: 300 MILLIGRAM
  9. DULOXETINE [Concomitant]
     Active Substance: DULOXETINE
     Dosage: 40 MILLIGRAM
  10. MEMANTINE [Concomitant]
     Active Substance: MEMANTINE
     Dosage: 10 MILLIGRAM
  11. CARBIDOPA\LEVODOPA [Concomitant]
     Active Substance: CARBIDOPA\LEVODOPA
     Dosage: 25-100 MG

REACTIONS (1)
  - Pneumonia [Not Recovered/Not Resolved]

NARRATIVE: CASE EVENT DATE: 20230405
